FAERS Safety Report 25550287 (Version 1)
Quarter: 2025Q3

REPORT INFORMATION
  Report Type: Spontaneous
  Country: GB (occurrence: GB)
  Receive Date: 20250714
  Receipt Date: 20250714
  Transmission Date: 20251020
  Serious: Yes (Hospitalization, Other)
  Sender: TORRENT PHARMA INC.
  Company Number: None

PATIENT
  Age: 60 Year
  Sex: Male
  Weight: 85 kg

DRUGS (6)
  1. MONTELUKAST [Suspect]
     Active Substance: MONTELUKAST
     Indication: Product used for unknown indication
     Route: 065
     Dates: start: 20230901, end: 20250702
  2. AMLODIPINE [Concomitant]
     Active Substance: AMLODIPINE BESYLATE
     Indication: Hypertension
     Route: 065
     Dates: start: 20250401, end: 20250702
  3. DYMISTA [Concomitant]
     Active Substance: AZELASTINE HYDROCHLORIDE\FLUTICASONE PROPIONATE
     Indication: Rhinitis
     Route: 065
     Dates: start: 20150101, end: 20250702
  4. EMTRICITABINE\TENOFOVIR [Concomitant]
     Active Substance: EMTRICITABINE\TENOFOVIR
     Indication: Adverse drug reaction
     Route: 065
     Dates: start: 20231201
  5. FEXOFENADINE [Concomitant]
     Active Substance: FEXOFENADINE HYDROCHLORIDE
     Indication: Rhinitis
     Route: 065
     Dates: start: 20150101, end: 20250702
  6. MEBEVERINE [Concomitant]
     Active Substance: MEBEVERINE
     Indication: Hypersensitivity
     Route: 065
     Dates: start: 20231101

REACTIONS (4)
  - Seizure [Not Recovered/Not Resolved]
  - Syncope [Unknown]
  - Feeling abnormal [Unknown]
  - Syncope [Unknown]

NARRATIVE: CASE EVENT DATE: 20240601
